FAERS Safety Report 17920011 (Version 39)
Quarter: 2025Q2

REPORT INFORMATION
  Report Type: Report from Study
  Country: US (occurrence: US)
  Receive Date: 20200620
  Receipt Date: 20250527
  Transmission Date: 20250716
  Serious: Yes (Other)
  Sender: TAKEDA
  Company Number: US-SHIRE-US202020139

PATIENT
  Age: 61 Year
  Sex: Female
  Weight: 70 kg

DRUGS (20)
  1. HUMAN IMMUNOGLOBULIN G\HYALURONIDASE RECOMBINANT HUMAN [Suspect]
     Active Substance: HUMAN IMMUNOGLOBULIN G\HYALURONIDASE (HUMAN RECOMBINANT)
     Indication: Immunodeficiency common variable
     Dosage: 30 GRAM, Q4WEEKS
     Dates: start: 20200505
  2. HUMAN IMMUNOGLOBULIN G\HYALURONIDASE RECOMBINANT HUMAN [Suspect]
     Active Substance: HUMAN IMMUNOGLOBULIN G\HYALURONIDASE (HUMAN RECOMBINANT)
  3. HUMAN IMMUNOGLOBULIN G\HYALURONIDASE RECOMBINANT HUMAN [Suspect]
     Active Substance: HUMAN IMMUNOGLOBULIN G\HYALURONIDASE (HUMAN RECOMBINANT)
     Dosage: 30 GRAM, Q4WEEKS
  4. DIPHENHYDRAMINE HYDROCHLORIDE [Concomitant]
     Active Substance: DIPHENHYDRAMINE HYDROCHLORIDE
  5. ATORVASTATIN CALCIUM [Concomitant]
     Active Substance: ATORVASTATIN CALCIUM
  6. FEXOFENADINE HYDROCHLORIDE [Concomitant]
     Active Substance: FEXOFENADINE HYDROCHLORIDE
  7. BREO ELLIPTA [Concomitant]
     Active Substance: FLUTICASONE FUROATE\VILANTEROL TRIFENATATE
  8. SIMVASTATIN [Concomitant]
     Active Substance: SIMVASTATIN
  9. VITAMIN K [Concomitant]
     Active Substance: PHYTONADIONE
  10. ACETAMINOPHEN [Concomitant]
     Active Substance: ACETAMINOPHEN
  11. SODIUM CHLORIDE [Concomitant]
     Active Substance: SODIUM CHLORIDE
  12. LORAZEPAM [Concomitant]
     Active Substance: LORAZEPAM
  13. CELEXA [Concomitant]
     Active Substance: CITALOPRAM HYDROBROMIDE
  14. VITAMIN D [Concomitant]
     Active Substance: VITAMIN D NOS
  15. MONTELUKAST SODIUM [Concomitant]
     Active Substance: MONTELUKAST SODIUM
  16. VITAMIN C [Concomitant]
     Active Substance: ASCORBIC ACID
  17. Lmx [Concomitant]
  18. EPINEPHRINE [Concomitant]
     Active Substance: EPINEPHRINE
  19. MELOXICAM [Concomitant]
     Active Substance: MELOXICAM
     Indication: Product used for unknown indication
  20. DIPHENHYDRAMINE [Concomitant]
     Active Substance: DIPHENHYDRAMINE

REACTIONS (40)
  - Nephrolithiasis [Unknown]
  - Loss of consciousness [Unknown]
  - Intestinal obstruction [Unknown]
  - Pneumonia [Unknown]
  - Lower respiratory tract infection [Unknown]
  - Fall [Unknown]
  - Lower limb fracture [Unknown]
  - Multiple allergies [Unknown]
  - Infection [Unknown]
  - Nasopharyngitis [Recovering/Resolving]
  - Discomfort [Unknown]
  - Illness [Unknown]
  - Flatulence [Unknown]
  - Pain [Unknown]
  - Bronchitis [Unknown]
  - Respiratory tract infection [Not Recovered/Not Resolved]
  - Upper respiratory tract infection [Unknown]
  - COVID-19 [Unknown]
  - Herpes zoster [Unknown]
  - Dermatitis contact [Unknown]
  - Gastrointestinal infection [Unknown]
  - Irritable bowel syndrome [Unknown]
  - Urinary tract infection [Unknown]
  - Limb discomfort [Unknown]
  - Product dose omission issue [Unknown]
  - Product use issue [Unknown]
  - Insurance issue [Unknown]
  - Cough [Not Recovered/Not Resolved]
  - Oropharyngeal pain [Not Recovered/Not Resolved]
  - Blood pressure increased [Unknown]
  - Rash erythematous [Unknown]
  - Rash [Unknown]
  - Fatigue [Unknown]
  - Infusion site bruising [Unknown]
  - Diarrhoea [Unknown]
  - Abdominal pain upper [Unknown]
  - Hyperhidrosis [Unknown]
  - Infusion site pain [Recovered/Resolved]
  - Headache [Unknown]
  - Infusion site erythema [Recovered/Resolved]

NARRATIVE: CASE EVENT DATE: 20210625
